FAERS Safety Report 9685515 (Version 1)
Quarter: 2013Q4

REPORT INFORMATION
  Report Type: Spontaneous
  Country: CN (occurrence: CN)
  Receive Date: 20131113
  Receipt Date: 20131113
  Transmission Date: 20140711
  Serious: Yes (Other)
  Sender: FDA-Public Use
  Company Number: CN-BRISTOL-MYERS SQUIBB COMPANY-19785104

PATIENT
  Age: 35 Year
  Sex: Male

DRUGS (2)
  1. GLUCOPHAGE [Suspect]
     Dosage: INITIAL DOSE WAS 0.5G THREE TIMES DAILY
     Dates: start: 20130902
  2. INSULIN [Concomitant]
     Dates: start: 20130902

REACTIONS (1)
  - Diabetic retinopathy [Unknown]
